FAERS Safety Report 9361045 (Version 2)
Quarter: 2013Q3

REPORT INFORMATION
  Report Type: Spontaneous
  Country: US (occurrence: None)
  Receive Date: 20130618
  Receipt Date: 20130708
  Transmission Date: 20140515
  Serious: No
  Sender: FDA-Public Use
  Company Number: JPI-P-032752

PATIENT
  Age: 25 Year
  Sex: Female

DRUGS (1)
  1. XYREM (500 MILLIGRAM/ MILLILITERS, SOLUTION) (SODIUM OXYBATE) [Suspect]
     Indication: CATAPLEXY
     Dosage: 4.5 GM (2.25 GM, 2 IN 1 D) ORAL
     Route: 048
     Dates: start: 20121231

REACTIONS (1)
  - Breast prosthesis implantation [None]
